FAERS Safety Report 9655129 (Version 2)
Quarter: 2013Q4

REPORT INFORMATION
  Report Type: Spontaneous
  Country: US (occurrence: US)
  Receive Date: 20131029
  Receipt Date: 20131029
  Transmission Date: 20140711
  Serious: No
  Sender: FDA-Public Use
  Company Number: US-PURDUE-USA-2010-0049945

PATIENT
  Sex: Male

DRUGS (3)
  1. OXYCONTIN (NDA 22-272) [Suspect]
     Indication: PRODUCT USED FOR UNKNOWN INDICATION
     Dosage: 80 MG, BID
     Dates: start: 20100916
  2. ROXICODONE [Concomitant]
     Indication: BREAKTHROUGH PAIN
     Dosage: UNK
  3. OXYCODONE HCL IR CAPSULES [Concomitant]
     Indication: BREAKTHROUGH PAIN

REACTIONS (8)
  - Drug withdrawal syndrome [Unknown]
  - Pain [Unknown]
  - Abdominal pain [Unknown]
  - Hyperhidrosis [Unknown]
  - Nervousness [Unknown]
  - Discomfort [Unknown]
  - Wrong technique in drug usage process [Unknown]
  - Drug ineffective [Unknown]
